FAERS Safety Report 7610392-8 (Version None)
Quarter: 2011Q3

REPORT INFORMATION
  Report Type: 
  Country: None (occurrence: None)
  Receive Date: 20110715
  Receipt Date: 20110711
  Transmission Date: 20111222
  Serious: Yes (Other)
  Sender: FDA-Public Use
  Company Number: US-PFIZER INC-2011156331

PATIENT
  Sex: Male
  Weight: 88.435 kg

DRUGS (4)
  1. EFFEXOR XR [Suspect]
     Indication: DEPRESSION
     Dosage: 450 MG, 1X/DAY
     Route: 048
     Dates: start: 20100601
  2. CLONAZEPAM [Concomitant]
     Indication: ANXIETY
     Dosage: 1 MG, UNK
  3. AMITRIPTYLINE [Concomitant]
     Indication: SLEEP DISORDER
     Dosage: UNK, 1X/DAY
  4. FENTANYL [Concomitant]
     Indication: PAIN
     Dosage: 75 MCG, UNK

REACTIONS (1)
  - WEIGHT INCREASED [None]
